FAERS Safety Report 8294084-0 (Version None)
Quarter: 2012Q2

REPORT INFORMATION
  Report Type: 
  Country: None (occurrence: None)
  Receive Date: 20120418
  Receipt Date: 20120405
  Transmission Date: 20120825
  Serious: Yes (Other)
  Sender: FDA-Public Use
  Company Number: GB-JNJFOC-20120101781

PATIENT
  Sex: Female

DRUGS (2)
  1. REMICADE [Suspect]
     Route: 042
     Dates: start: 20111215
  2. REMICADE [Suspect]
     Indication: CROHN'S DISEASE
     Dosage: SECOND DOSE
     Route: 042
     Dates: start: 20120105

REACTIONS (6)
  - NAUSEA [None]
  - URTICARIA [None]
  - DYSPNOEA [None]
  - DIARRHOEA [None]
  - INFUSION RELATED REACTION [None]
  - DYSPHAGIA [None]
